FAERS Safety Report 6336816-4 (Version None)
Quarter: 2009Q3

REPORT INFORMATION
  Report Type: 
  Country: None (occurrence: None)
  Receive Date: 20090831
  Receipt Date: 20090831
  Transmission Date: 20100115
  Serious: Yes (Other)
  Sender: FDA-Public Use
  Company Number: None

PATIENT
  Age: 80 Year
  Sex: Male
  Weight: 83.9154 kg

DRUGS (1)
  1. LEVAQUIN [Suspect]
     Indication: IMPAIRED HEALING
     Dosage: ONE TABLET DAILY PO
     Route: 048
     Dates: start: 20090331, end: 20090409

REACTIONS (1)
  - TENDON PAIN [None]
